FAERS Safety Report 18907097 (Version 5)
Quarter: 2021Q2

REPORT INFORMATION
  Report Type: Spontaneous
  Country: US (occurrence: US)
  Receive Date: 20210218
  Receipt Date: 20210419
  Transmission Date: 20210717
  Serious: Yes (Hospitalization)
  Sender: FDA-Public Use
  Company Number: US-BIOGEN-2021BI00979737

PATIENT
  Sex: Female

DRUGS (8)
  1. TYSABRI [Suspect]
     Active Substance: NATALIZUMAB
     Route: 065
     Dates: start: 20161005
  2. TYSABRI [Suspect]
     Active Substance: NATALIZUMAB
     Indication: MULTIPLE SCLEROSIS
     Route: 065
     Dates: start: 20120214, end: 20150721
  3. BACITRACIN ZINC. [Suspect]
     Active Substance: BACITRACIN ZINC
     Indication: PRODUCT USED FOR UNKNOWN INDICATION
     Route: 065
  4. TYSABRI [Suspect]
     Active Substance: NATALIZUMAB
     Route: 065
     Dates: start: 20151102, end: 20160105
  5. TYSABRI [Suspect]
     Active Substance: NATALIZUMAB
     Route: 042
     Dates: end: 202104
  6. POLYMYXIN B SULFATE. [Suspect]
     Active Substance: POLYMYXIN B SULFATE
     Indication: PRODUCT USED FOR UNKNOWN INDICATION
     Route: 065
  7. TRIMETHOPRIM. [Suspect]
     Active Substance: TRIMETHOPRIM
     Indication: PRODUCT USED FOR UNKNOWN INDICATION
     Route: 065
  8. TYSABRI [Suspect]
     Active Substance: NATALIZUMAB
     Route: 042
     Dates: start: 2014, end: 2021

REACTIONS (10)
  - Dehydration [Not Recovered/Not Resolved]
  - Hordeolum [Unknown]
  - Drug hypersensitivity [Unknown]
  - Diarrhoea [Not Recovered/Not Resolved]
  - Multiple sclerosis relapse [Not Recovered/Not Resolved]
  - Muscular weakness [Unknown]
  - Visual impairment [Unknown]
  - Muscle spasms [Not Recovered/Not Resolved]
  - White blood cell count increased [Unknown]
  - Herpes zoster [Unknown]

NARRATIVE: CASE EVENT DATE: 2020
